FAERS Safety Report 18595594 (Version 1)
Quarter: 2020Q4

REPORT INFORMATION
  Report Type: Spontaneous
  Country: US (occurrence: US)
  Receive Date: 20201209
  Receipt Date: 20201209
  Transmission Date: 20210114
  Serious: Yes (Hospitalization, Other)
  Sender: FDA-Public Use
  Company Number: None

PATIENT
  Age: 65 Year
  Sex: Male

DRUGS (8)
  1. XELJANZ [Suspect]
     Active Substance: TOFACITINIB CITRATE
     Indication: RHEUMATOID ARTHRITIS
     Route: 048
     Dates: start: 20180403
  2. ASPIRIN. [Concomitant]
     Active Substance: ASPIRIN
  3. MUPIROCIN. [Concomitant]
     Active Substance: MUPIROCIN
  4. PREDNISONE. [Concomitant]
     Active Substance: PREDNISONE
  5. ALBUTEROL. [Concomitant]
     Active Substance: ALBUTEROL
  6. DEXAMETHASON [Concomitant]
     Active Substance: DEXAMETHASONE
  7. ANTISEPTIC [Concomitant]
     Active Substance: CHLOROXYLENOL
  8. HYDROCO/APAP [Concomitant]
     Active Substance: ACETAMINOPHEN\HYDROCODONE

REACTIONS (2)
  - COVID-19 [None]
  - Hip surgery [None]

NARRATIVE: CASE EVENT DATE: 20201208
